FAERS Safety Report 5015166-2 (Version None)
Quarter: 2006Q2

REPORT INFORMATION
  Report Type: 
  Country: None (occurrence: None)
  Receive Date: 20060530
  Receipt Date: 20060512
  Transmission Date: 20061013
  Serious: Yes (Hospitalization)
  Sender: FDA-Public Use
  Company Number: DSA_28228_2006

PATIENT
  Age: 80 Year
  Sex: Male

DRUGS (12)
  1. DILTIAZEM HCL [Suspect]
     Indication: ANGINA PECTORIS
     Dosage: 200 MG Q DAY PO
     Route: 048
     Dates: start: 20060417, end: 20060422
  2. ALDACTONE [Concomitant]
  3. KERLONG [Concomitant]
  4. GASMET [Concomitant]
  5. CERCINE [Concomitant]
  6. DIOVAN /01319601/ [Concomitant]
  7. NELBIS [Concomitant]
  8. HARNAL D [Concomitant]
  9. AMLODIN [Concomitant]
  10. ASPIRIN [Concomitant]
  11. LASIX        /00032601/ [Concomitant]
  12. ISOSORBIDE MONONITRATE [Concomitant]

REACTIONS (4)
  - ABDOMINAL PAIN UPPER [None]
  - OEDEMA PERIPHERAL [None]
  - RENAL IMPAIRMENT [None]
  - WEIGHT INCREASED [None]
